FAERS Safety Report 22517982 (Version 1)
Quarter: 2023Q2

REPORT INFORMATION
  Report Type: Report from Study
  Country: NL (occurrence: NL)
  Receive Date: 20230605
  Receipt Date: 20230605
  Transmission Date: 20230721
  Serious: Yes (Other)
  Sender: FDA-Public Use
  Company Number: NL-ABBVIE-5186601

PATIENT
  Sex: Female

DRUGS (3)
  1. CARBIDOPA\LEVODOPA [Suspect]
     Active Substance: CARBIDOPA\LEVODOPA
     Indication: Parkinson^s disease
     Route: 050
     Dates: start: 20140220
  2. CARBIDOPA\LEVODOPA [Suspect]
     Active Substance: CARBIDOPA\LEVODOPA
     Dosage: MD 5.5 ML; CD 2.7 ML/H; ED 2.7 ML
     Route: 050
  3. CARBIDOPA\LEVODOPA [Suspect]
     Active Substance: CARBIDOPA\LEVODOPA
     Dosage: MD 5.5 ML; CD 2.5 ML/H; ED 2.7 ML
     Route: 050

REACTIONS (6)
  - Cardiac pacemaker insertion [Unknown]
  - Confusional state [Recovered/Resolved]
  - Bradykinesia [Recovering/Resolving]
  - Movement disorder [Recovering/Resolving]
  - Dyskinesia [Not Recovered/Not Resolved]
  - Stress [Not Recovered/Not Resolved]
